FAERS Safety Report 4426465-7 (Version None)
Quarter: 2004Q3

REPORT INFORMATION
  Report Type: 
  Country: None (occurrence: None)
  Receive Date: 20040815
  Receipt Date: 20040803
  Transmission Date: 20050211
  Serious: Yes (Death)
  Sender: FDA-Public Use
  Company Number: MY-MERCK-0408MYS00002

PATIENT
  Age: 42 Year

DRUGS (6)
  1. CANCIDAS [Suspect]
     Indication: FUNGAL INFECTION
     Route: 041
     Dates: start: 20040718, end: 20040718
  2. CANCIDAS [Suspect]
     Route: 041
     Dates: start: 20040719, end: 20040724
  3. TIENAM [Concomitant]
     Route: 065
  4. GANCICLOVIR [Concomitant]
     Route: 065
  5. MERONEM [Concomitant]
     Route: 065
     Dates: start: 20040726, end: 20040726
  6. VANCOMYCIN [Concomitant]
     Route: 065

REACTIONS (2)
  - ALANINE AMINOTRANSFERASE INCREASED [None]
  - SEPSIS [None]
